FAERS Safety Report 15824000 (Version 1)
Quarter: 2019Q1

REPORT INFORMATION
  Report Type: Spontaneous
  Country: US (occurrence: US)
  Receive Date: 20190114
  Receipt Date: 20190114
  Transmission Date: 20190417
  Serious: Yes (Hospitalization, Other)
  Sender: FDA-Public Use
  Company Number: US-GILEAD-2019-0384319

PATIENT
  Age: 74 Year
  Sex: Male

DRUGS (1)
  1. TRUVADA [Suspect]
     Active Substance: EMTRICITABINE\TENOFOVIR DISOPROXIL FUMARATE
     Indication: HEPATITIS B
     Dosage: ONE-HALF TABLET, QD
     Route: 065

REACTIONS (5)
  - Off label use [Not Recovered/Not Resolved]
  - Product prescribing error [Unknown]
  - Treatment noncompliance [Not Recovered/Not Resolved]
  - Creatinine renal clearance decreased [Unknown]
  - Small intestinal obstruction [Unknown]
